FAERS Safety Report 12561027 (Version 1)
Quarter: 2016Q3

REPORT INFORMATION
  Report Type: Spontaneous
  Country: US (occurrence: US)
  Receive Date: 20160715
  Receipt Date: 20160715
  Transmission Date: 20161109
  Serious: No
  Sender: FDA-Public Use
  Company Number: US-ACTAVIS-2016-03904

PATIENT
  Age: 68 Year
  Sex: Female

DRUGS (1)
  1. DICLOFENAC-MISOPROSTOL (ACTAVIS LABORATORIES FL) [Suspect]
     Active Substance: DICLOFENAC SODIUM\MISOPROSTOL
     Indication: ARTHRITIS
     Dosage: 4 TABLETS, DAILY
     Route: 048

REACTIONS (2)
  - Drug ineffective [Recovering/Resolving]
  - Product quality issue [None]
